FAERS Safety Report 16139854 (Version 1)
Quarter: 2019Q2

REPORT INFORMATION
  Report Type: Spontaneous
  Country: US (occurrence: US)
  Receive Date: 20190329
  Receipt Date: 20190329
  Transmission Date: 20190711
  Serious: Yes (Hospitalization, Disabling)
  Sender: FDA-Public Use
  Company Number: None

PATIENT
  Age: 81 Year
  Sex: Male
  Weight: 72 kg

DRUGS (1)
  1. NIVOLUMAB [Suspect]
     Active Substance: NIVOLUMAB
     Indication: RENAL CELL CARCINOMA
     Dosage: ?          OTHER FREQUENCY:EVERY 14 DAYS;?
     Route: 040
     Dates: start: 20190228, end: 20190314

REACTIONS (5)
  - Autoimmune neuropathy [None]
  - Diplopia [None]
  - Autoimmune disorder [None]
  - Eyelid ptosis [None]
  - Myositis [None]

NARRATIVE: CASE EVENT DATE: 20190326
